FAERS Safety Report 11899940 (Version 1)
Quarter: 2016Q1

REPORT INFORMATION
  Report Type: Spontaneous
  Country: ES (occurrence: ES)
  Receive Date: 20160108
  Receipt Date: 20160108
  Transmission Date: 20160526
  Serious: Yes (Other)
  Sender: FDA-Public Use
  Company Number: ES-GALDERMA-ES16000003

PATIENT
  Age: 19 Year
  Sex: Female

DRUGS (2)
  1. DIFFERIN [Suspect]
     Active Substance: ADAPALENE
     Indication: ACNE
     Dosage: 0.1%
     Route: 061
     Dates: start: 20151125
  2. PEROXIBEN [Suspect]
     Active Substance: BENZOYL PEROXIDE
     Indication: PRODUCT USED FOR UNKNOWN INDICATION
     Dosage: 5%
     Route: 061
     Dates: start: 20151125, end: 201512

REACTIONS (2)
  - Herpes dermatitis [Unknown]
  - Application site burn [Unknown]

NARRATIVE: CASE EVENT DATE: 20151126
